FAERS Safety Report 18182363 (Version 1)
Quarter: 2020Q3

REPORT INFORMATION
  Report Type: Spontaneous
  Country: GB (occurrence: GB)
  Receive Date: 20200821
  Receipt Date: 20200821
  Transmission Date: 20201103
  Serious: Yes (Hospitalization)
  Sender: FDA-Public Use
  Company Number: GB-TEVA-2020-GB-1816136

PATIENT
  Age: 80 Year
  Sex: Male

DRUGS (1)
  1. DOXAZOSIN [Suspect]
     Active Substance: DOXAZOSIN MESYLATE
     Route: 048
     Dates: end: 20200722

REACTIONS (2)
  - Oedema peripheral [Unknown]
  - Hypotension [Unknown]
